FAERS Safety Report 5480130-6 (Version None)
Quarter: 2007Q4

REPORT INFORMATION
  Report Type: 
  Country: None (occurrence: None)
  Receive Date: 20071009
  Receipt Date: 20070928
  Transmission Date: 20080405
  Serious: Yes (Other)
  Sender: FDA-Public Use
  Company Number: PHHO2007BR16116

PATIENT
  Age: 81 Year
  Sex: Male

DRUGS (1)
  1. DIOVAN HCT [Suspect]
     Indication: HYPERTENSION
     Dosage: 160/12.5
     Route: 048

REACTIONS (4)
  - EYE OEDEMA [None]
  - FACE OEDEMA [None]
  - LISTLESS [None]
  - OEDEMA PERIPHERAL [None]
